FAERS Safety Report 11138944 (Version 1)
Quarter: 2015Q2

REPORT INFORMATION
  Report Type: Spontaneous
  Country: US (occurrence: US)
  Receive Date: 20150527
  Receipt Date: 20150527
  Transmission Date: 20150821
  Serious: Yes (Hospitalization, Other)
  Sender: FDA-Public Use
  Company Number: US-AUROBINDO-AUR-APU-2015-04555

PATIENT
  Age: 78 Year
  Sex: Female
  Weight: 98 kg

DRUGS (9)
  1. CITALOPRAM [Suspect]
     Active Substance: CITALOPRAM HYDROBROMIDE
     Indication: ANXIETY
     Dosage: 20 MG, UNK
     Route: 048
     Dates: start: 2011
  2. AMLODIPINE BESYLATE. [Suspect]
     Active Substance: AMLODIPINE BESYLATE
     Indication: HYPERTENSION
     Dosage: 5 MG, DAILY
     Route: 048
  3. LASIX [Suspect]
     Active Substance: FUROSEMIDE
     Indication: HYPERTENSION
     Dosage: 40 MG, EVERY OTHER DAY
     Route: 048
  4. SUTENT [Suspect]
     Active Substance: SUNITINIB MALATE
     Indication: RENAL CELL CARCINOMA
     Dosage: 37.5 MG, DAILY
     Route: 048
     Dates: start: 20141231, end: 201502
  5. CALCIUM [Suspect]
     Active Substance: CALCIUM
     Indication: MINERAL SUPPLEMENTATION
     Dosage: UNK, DAILY
     Route: 048
  6. VITAMIN D                          /00107901/ [Suspect]
     Active Substance: ERGOCALCIFEROL
     Indication: PRODUCT USED FOR UNKNOWN INDICATION
     Dosage: UNK, AS NECESSARY
     Route: 065
  7. HYDRALAZINE [Suspect]
     Active Substance: HYDRALAZINE HYDROCHLORIDE
     Indication: BLOOD PRESSURE
     Dosage: 2 DF, 3 TIMES A DAY
     Route: 048
  8. LABETALOL [Suspect]
     Active Substance: LABETALOL\LABETALOL HYDROCHLORIDE
     Indication: HYPERTENSION
     Dosage: 100 MG, TWO TIMES A DAY
     Route: 048
  9. VITAMIN C [Suspect]
     Active Substance: ASCORBIC ACID
     Indication: PRODUCT USED FOR UNKNOWN INDICATION
     Dosage: UNK
     Route: 065

REACTIONS (2)
  - Pneumonia [Recovering/Resolving]
  - Body height decreased [Unknown]

NARRATIVE: CASE EVENT DATE: 20150215
